FAERS Safety Report 15291845 (Version 2)
Quarter: 2018Q3

REPORT INFORMATION
  Report Type: Report from Study
  Country: US (occurrence: US)
  Receive Date: 20180817
  Receipt Date: 20180906
  Transmission Date: 20181010
  Serious: Yes (Hospitalization)
  Sender: FDA-Public Use
  Company Number: US-EXELIXIS-CABO-18015438

PATIENT
  Age: 59 Year
  Sex: Female

DRUGS (1)
  1. CABOMETYX [Suspect]
     Active Substance: CABOZANTINIB S-MALATE
     Indication: RENAL CANCER
     Dosage: 40 MG, QD IN THE MORNING AND ON AN EMPTY STOMACH
     Route: 048
     Dates: start: 20180220

REACTIONS (10)
  - Blood urea increased [Unknown]
  - Blood creatinine increased [Unknown]
  - White blood cell count decreased [Unknown]
  - Oesophagitis [Unknown]
  - Haematocrit decreased [Unknown]
  - Clostridium difficile colitis [Unknown]
  - Constipation [Unknown]
  - Red blood cell count decreased [Unknown]
  - Platelet count decreased [Unknown]
  - Glomerular filtration rate decreased [Unknown]

NARRATIVE: CASE EVENT DATE: 201807
